FAERS Safety Report 8773856 (Version 2)
Quarter: 2012Q4

REPORT INFORMATION
  Report Type: 
  Country: US (occurrence: US)
  Receive Date: 20120907
  Receipt Date: 20120917
  Transmission Date: 20130627
  Serious: Yes (Life-Threatening, Hospitalization, Disabling)
  Sender: FDA-Public Use
  Company Number: US-BAYER-2012-092166

PATIENT
  Age: 47 Year
  Sex: Female

DRUGS (4)
  1. YASMIN [Suspect]
  2. OCELLA [Suspect]
  3. YAZ [Suspect]
  4. HYDROCODONE W/APAP [Concomitant]
     Dosage: 5/325
     Route: 048

REACTIONS (9)
  - Deep vein thrombosis [None]
  - Pulmonary embolism [None]
  - Injury [None]
  - Pain [None]
  - Emotional distress [None]
  - Anxiety [None]
  - Anhedonia [None]
  - General physical health deterioration [None]
  - Pain [None]
